FAERS Safety Report 25533955 (Version 2)
Quarter: 2025Q3

REPORT INFORMATION
  Report Type: Spontaneous
  Country: US (occurrence: US)
  Receive Date: 20250709
  Receipt Date: 20250715
  Transmission Date: 20251021
  Serious: No
  Sender: ABBVIE
  Company Number: US-ABBVIE-6362741

PATIENT
  Age: 34 Year
  Sex: Female

DRUGS (3)
  1. RISANKIZUMAB [Suspect]
     Active Substance: RISANKIZUMAB
     Indication: Crohn^s disease
     Route: 058
     Dates: start: 202507
  2. LEVOTHYROXINE [Concomitant]
     Active Substance: LEVOTHYROXINE
     Indication: Product used for unknown indication
  3. BISOPROLOL [Concomitant]
     Active Substance: BISOPROLOL
     Indication: Product used for unknown indication

REACTIONS (6)
  - Malaise [Not Recovered/Not Resolved]
  - Abdominal discomfort [Unknown]
  - Product storage error [Unknown]
  - Diarrhoea [Unknown]
  - Bone pain [Unknown]
  - Headache [Unknown]

NARRATIVE: CASE EVENT DATE: 20250701
